FAERS Safety Report 17999544 (Version 1)
Quarter: 2020Q3

REPORT INFORMATION
  Report Type: Spontaneous
  Country: US (occurrence: US)
  Receive Date: 20200709
  Receipt Date: 20200709
  Transmission Date: 20201103
  Serious: No
  Sender: FDA-Public Use
  Company Number: US-009507513-2006USA005254

PATIENT
  Age: 11 Year
  Sex: Male

DRUGS (4)
  1. BEVACIZUMAB. [Concomitant]
     Active Substance: BEVACIZUMAB
     Dosage: 10 MILLIGRAM/KILOGRAM, Q2M
  2. TEMODAR [Suspect]
     Active Substance: TEMOZOLOMIDE
     Indication: CUTANEOUS T-CELL LYMPHOMA
     Dosage: 200 MILLIGRAM/SQ. METER, QD X 5 DAYS (28 DAY CYCLES)
  3. OSIMERTINIB. [Concomitant]
     Active Substance: OSIMERTINIB
     Dosage: 40 MILLIGRAM, QD
  4. TEMODAR [Suspect]
     Active Substance: TEMOZOLOMIDE
     Dosage: 90 MILLIGRAM/SQ. METER, QD

REACTIONS (1)
  - Off label use [Unknown]
